FAERS Safety Report 15402988 (Version 1)
Quarter: 2018Q3

REPORT INFORMATION
  Report Type: Spontaneous
  Country: US (occurrence: US)
  Receive Date: 20180919
  Receipt Date: 20180919
  Transmission Date: 20181010
  Serious: Yes (Hospitalization)
  Sender: FDA-Public Use
  Company Number: US-ASTRAZENECA-2018SF17422

PATIENT
  Age: 1042 Month
  Sex: Female
  Weight: 49.9 kg

DRUGS (8)
  1. SYMBICORT [Suspect]
     Active Substance: BUDESONIDE\FORMOTEROL FUMARATE DIHYDRATE
     Indication: CHRONIC OBSTRUCTIVE PULMONARY DISEASE
     Dosage: UNKOWN DOSE, TWO PUFFS, TWO TIMES A DAY
     Route: 055
     Dates: start: 20180104, end: 20180904
  2. MULTI VITAMIN [Concomitant]
     Active Substance: VITAMINS
     Indication: SUPPLEMENTATION THERAPY
     Dosage: DAILY
  3. METOPROLOL SUCCINATE. [Suspect]
     Active Substance: METOPROLOL SUCCINATE
     Indication: HYPERTENSION
     Dosage: 1.5 X 25MG PILL DAILY
     Route: 048
     Dates: start: 20180104
  4. SPIRIVA [Concomitant]
     Active Substance: TIOTROPIUM BROMIDE MONOHYDRATE
     Dosage: 1 PUFF, ONCE IN THE MORNING, DAILY
     Route: 055
     Dates: start: 20180104
  5. PULMICORT FLEXHALER [Suspect]
     Active Substance: BUDESONIDE
     Indication: CHRONIC OBSTRUCTIVE PULMONARY DISEASE
     Route: 055
     Dates: start: 20180904
  6. VITAMIN D3 [Concomitant]
     Active Substance: CHOLECALCIFEROL
     Indication: SUPPLEMENTATION THERAPY
  7. COQ10 [Concomitant]
     Active Substance: UBIDECARENONE
     Indication: CARDIAC DISORDER
     Dosage: DAILY
     Route: 048
  8. LISINOPRIL. [Suspect]
     Active Substance: LISINOPRIL
     Indication: HYPERTENSION
     Dosage: 5 MG, DAILY
     Route: 048

REACTIONS (17)
  - Pain in extremity [Recovered/Resolved]
  - Loss of consciousness [Unknown]
  - Mass [Unknown]
  - Thyroid disorder [Unknown]
  - Off label use [Unknown]
  - Loss of personal independence in daily activities [Unknown]
  - Arrhythmia [Unknown]
  - Hypophagia [Unknown]
  - Chronic obstructive pulmonary disease [Not Recovered/Not Resolved]
  - Malaise [Unknown]
  - Heart rate increased [Unknown]
  - Pneumonia [Recovered/Resolved]
  - Fall [Unknown]
  - Nephrolithiasis [Not Recovered/Not Resolved]
  - Wolff-Parkinson-White syndrome [Unknown]
  - Intentional product misuse [Unknown]
  - Product use issue [Unknown]

NARRATIVE: CASE EVENT DATE: 201807
